FAERS Safety Report 5388916-3 (Version None)
Quarter: 2007Q3

REPORT INFORMATION
  Report Type: 
  Country: None (occurrence: None)
  Receive Date: 20070717
  Receipt Date: 20070710
  Transmission Date: 20080115
  Serious: Yes (Other)
  Sender: FDA-Public Use
  Company Number: PHEH2007US09802

PATIENT
  Age: 91 Year
  Sex: Female
  Weight: 76.19 kg

DRUGS (1)
  1. SANDOSTATIN LAR [Suspect]
     Indication: CARCINOID SYNDROME

REACTIONS (3)
  - INJECTION SITE CELLULITIS [None]
  - PYREXIA [None]
  - SEPSIS [None]
